FAERS Safety Report 9094216 (Version 6)
Quarter: 2013Q4

REPORT INFORMATION
  Report Type: Spontaneous
  Country: US (occurrence: None)
  Receive Date: 20130122
  Receipt Date: 20131202
  Transmission Date: 20140711
  Serious: Yes (Life-Threatening, Hospitalization, Other)
  Sender: FDA-Public Use
  Company Number: ADR-2013-00072

PATIENT
  Sex: Male

DRUGS (3)
  1. LIORESAL INTRATHECAL [Suspect]
     Indication: PAIN
     Dosage: SEE B5
  2. DILAUDID (HYDROMORPHONE) [Suspect]
     Dosage: SEE B5
  3. CLONIDINE INTRATHECAL [Suspect]

REACTIONS (3)
  - Respiratory failure [None]
  - Mental status changes [None]
  - Device issue [None]
